FAERS Safety Report 5811845-5 (Version None)
Quarter: 2008Q3

REPORT INFORMATION
  Report Type: 
  Country: None (occurrence: None)
  Receive Date: 20080716
  Receipt Date: 20080714
  Transmission Date: 20090109
  Serious: Yes (Death, Hospitalization)
  Sender: FDA-Public Use
  Company Number: IN-BRISTOL-MYERS SQUIBB COMPANY-14248413

PATIENT
  Age: 60 Year
  Sex: Male

DRUGS (6)
  1. TAXOL [Suspect]
     Indication: HEAD AND NECK CANCER
  2. CISPLATIN [Suspect]
     Indication: HEAD AND NECK CANCER
  3. IFOSFAMIDE [Suspect]
     Indication: HEAD AND NECK CANCER
  4. FLUOROURACIL [Suspect]
     Indication: HEAD AND NECK CANCER
  5. PIPERACILLIN AND TAZOBACTAM [Concomitant]
     Route: 042
     Dates: start: 20070902, end: 20070910
  6. FILGRASTIM [Concomitant]
     Route: 042

REACTIONS (2)
  - FEBRILE NEUTROPENIA [None]
  - RENAL FAILURE ACUTE [None]
